FAERS Safety Report 4777539-2 (Version None)
Quarter: 2005Q3

REPORT INFORMATION
  Report Type: 
  Country: None (occurrence: None)
  Receive Date: 20050921
  Receipt Date: 20050913
  Transmission Date: 20060218
  Serious: Yes (Other)
  Sender: FDA-Public Use
  Company Number: 2005127268

PATIENT
  Age: 75 Year
  Sex: Female

DRUGS (2)
  1. LIPITOR [Suspect]
     Indication: HYPERTENSION
     Dosage: (10 MG), ORAL
     Route: 048
  2. OTHER ANTIHYPERTENSIVES (OTHER ANTIHYPERTENSIVES) [Concomitant]

REACTIONS (2)
  - GAMMA-GLUTAMYLTRANSFERASE INCREASED [None]
  - TRANSIENT ISCHAEMIC ATTACK [None]
